FAERS Safety Report 16678638 (Version 6)
Quarter: 2021Q4

REPORT INFORMATION
  Report Type: Spontaneous
  Country: US (occurrence: US)
  Receive Date: 20190807
  Receipt Date: 20211209
  Transmission Date: 20220303
  Serious: Yes (Hospitalization, Other)
  Sender: FDA-Public Use
  Company Number: US-GILEAD-2019-0421720

PATIENT
  Age: 59 Year
  Sex: Female
  Weight: 63.5 kg

DRUGS (70)
  1. ATRIPLA [Suspect]
     Active Substance: EFAVIRENZ\EMTRICITABINE\TENOFOVIR DISOPROXIL FUMARATE
     Indication: HIV infection
     Dosage: UNK
     Route: 048
     Dates: start: 20100506, end: 20160606
  2. ATRIPLA [Suspect]
     Active Substance: EFAVIRENZ\EMTRICITABINE\TENOFOVIR DISOPROXIL FUMARATE
     Dosage: UNK
     Route: 048
     Dates: start: 2004, end: 20160606
  3. ATRIPLA [Suspect]
     Active Substance: EFAVIRENZ\EMTRICITABINE\TENOFOVIR DISOPROXIL FUMARATE
     Dosage: UNK
     Route: 048
     Dates: start: 20100120, end: 201301
  4. ATRIPLA [Suspect]
     Active Substance: EFAVIRENZ\EMTRICITABINE\TENOFOVIR DISOPROXIL FUMARATE
     Dosage: UNK
     Route: 048
     Dates: start: 20130126, end: 201305
  5. ATRIPLA [Suspect]
     Active Substance: EFAVIRENZ\EMTRICITABINE\TENOFOVIR DISOPROXIL FUMARATE
     Dosage: UNK
     Route: 048
     Dates: start: 20130514, end: 201308
  6. ATRIPLA [Suspect]
     Active Substance: EFAVIRENZ\EMTRICITABINE\TENOFOVIR DISOPROXIL FUMARATE
     Dosage: UNK
     Route: 048
     Dates: start: 20130804, end: 20140715
  7. ATRIPLA [Suspect]
     Active Substance: EFAVIRENZ\EMTRICITABINE\TENOFOVIR DISOPROXIL FUMARATE
     Dosage: UNK
     Route: 048
     Dates: start: 20140715, end: 201512
  8. ATRIPLA [Suspect]
     Active Substance: EFAVIRENZ\EMTRICITABINE\TENOFOVIR DISOPROXIL FUMARATE
     Dosage: UNK
     Route: 048
     Dates: start: 20151222, end: 20160414
  9. ATRIPLA [Suspect]
     Active Substance: EFAVIRENZ\EMTRICITABINE\TENOFOVIR DISOPROXIL FUMARATE
     Dosage: UNK
     Route: 048
     Dates: start: 20160414, end: 20160606
  10. JULUCA [Concomitant]
     Active Substance: DOLUTEGRAVIR SODIUM\RILPIVIRINE HYDROCHLORIDE
  11. SUSTIVA [Concomitant]
     Active Substance: EFAVIRENZ
  12. CALCIUM [Concomitant]
     Active Substance: CALCIUM
  13. ASPIRIN [Concomitant]
     Active Substance: ASPIRIN
     Indication: Chronic kidney disease
     Dosage: DAILY
     Dates: start: 201603, end: 20190328
  14. CYCLOBENZAPRINE [Concomitant]
     Active Substance: CYCLOBENZAPRINE
  15. ACETAMINOPHEN [Concomitant]
     Active Substance: ACETAMINOPHEN
  16. AMOXICILLIN [Concomitant]
     Active Substance: AMOXICILLIN
  17. BACTRIM [Concomitant]
     Active Substance: SULFAMETHOXAZOLE\TRIMETHOPRIM
  18. CORTISONE [Concomitant]
     Active Substance: CORTISONE
  19. DEXAMETHASONE [Concomitant]
     Active Substance: DEXAMETHASONE
  20. OMEPRAZOLE [Concomitant]
     Active Substance: OMEPRAZOLE
  21. NAPROXEN [Concomitant]
     Active Substance: NAPROXEN
  22. LORTAB [Concomitant]
     Active Substance: ACETAMINOPHEN\HYDROCODONE BITARTRATE
  23. ISENTRESS [Concomitant]
     Active Substance: RALTEGRAVIR POTASSIUM
  24. ZIAGEN [Concomitant]
     Active Substance: ABACAVIR SULFATE
  25. TUMS [Concomitant]
     Active Substance: CALCIUM CARBONATE
  26. GABAPENTIN [Concomitant]
     Active Substance: GABAPENTIN
  27. LOPID [Concomitant]
     Active Substance: GEMFIBROZIL
  28. CELECOXIB [Concomitant]
     Active Substance: CELECOXIB
  29. TRAZODONE [Concomitant]
     Active Substance: TRAZODONE HYDROCHLORIDE
  30. ALBUTEROL SULFATE [Concomitant]
     Active Substance: ALBUTEROL SULFATE
  31. QUETIAPINE [Concomitant]
     Active Substance: QUETIAPINE
  32. CYPROHEPTADINE [Concomitant]
     Active Substance: CYPROHEPTADINE
  33. DOXYCYCLINE [Concomitant]
     Active Substance: DOXYCYCLINE
  34. HYDROXYZINE [Concomitant]
     Active Substance: HYDROXYZINE HYDROCHLORIDE
  35. DEXLANSOPRAZOLE [Concomitant]
     Active Substance: DEXLANSOPRAZOLE
  36. XANAX [Concomitant]
     Active Substance: ALPRAZOLAM
  37. PENCILIN V [Concomitant]
  38. BACTROBAN [Concomitant]
     Active Substance: MUPIROCIN\MUPIROCIN CALCIUM
  39. TORADOL [Concomitant]
     Active Substance: KETOROLAC TROMETHAMINE
  40. PROMETHAZINE [Concomitant]
     Active Substance: PROMETHAZINE HYDROCHLORIDE
  41. CITALOPRAM [Concomitant]
     Active Substance: CITALOPRAM HYDROBROMIDE
  42. MELOXICAM [Concomitant]
     Active Substance: MELOXICAM
  43. POTASSIUM CHLORIDE [Concomitant]
     Active Substance: POTASSIUM CHLORIDE
  44. AZITHROMYCIN [Concomitant]
     Active Substance: AZITHROMYCIN
  45. COLESTIPOL [Concomitant]
     Active Substance: COLESTIPOL
  46. ERGOCALCIFEROL [Concomitant]
     Active Substance: ERGOCALCIFEROL
  47. FLUCONAZOLE [Concomitant]
     Active Substance: FLUCONAZOLE
  48. VENTOLIN [Concomitant]
     Active Substance: ALBUTEROL SULFATE
  49. PROCRIT [Concomitant]
     Active Substance: ERYTHROPOIETIN
  50. TETRACYCLINE [Concomitant]
     Active Substance: TETRACYCLINE
  51. IBUPROFEN [Concomitant]
     Active Substance: IBUPROFEN
  52. CLONAZEPAM [Concomitant]
     Active Substance: CLONAZEPAM
  53. PRED FORTE [Concomitant]
     Active Substance: PREDNISOLONE ACETATE
  54. FLUTICASONE [Concomitant]
     Active Substance: FLUTICASONE
  55. NEOMYCIN [Concomitant]
     Active Substance: NEOMYCIN
  56. MEGESTROL [Concomitant]
     Active Substance: MEGESTROL
  57. CIPROFLOXACIN [Concomitant]
     Active Substance: CIPROFLOXACIN
  58. BUPROPION-RL [Concomitant]
  59. LORATADINE [Concomitant]
     Active Substance: LORATADINE
  60. TRAMADOL [Concomitant]
     Active Substance: TRAMADOL
  61. CLINDAMYCIN [Concomitant]
     Active Substance: CLINDAMYCIN
  62. SILVER SULFADIAZINE [Concomitant]
     Active Substance: SILVER SULFADIAZINE
  63. CHANTIX [Concomitant]
     Active Substance: VARENICLINE TARTRATE
  64. PHENAZOPYRIDINE [Concomitant]
     Active Substance: PHENAZOPYRIDINE
  65. OLOPATADINE [Concomitant]
     Active Substance: OLOPATADINE
  66. METHOCARBAMOL [Concomitant]
     Active Substance: METHOCARBAMOL
  67. OMNARIS [Concomitant]
     Active Substance: CICLESONIDE
  68. ATROVENT [Concomitant]
     Active Substance: IPRATROPIUM BROMIDE
  69. FEXOFENADINE [Concomitant]
     Active Substance: FEXOFENADINE HYDROCHLORIDE
  70. NICODERM CQ [Concomitant]
     Active Substance: NICOTINE

REACTIONS (9)
  - Chronic kidney disease [Not Recovered/Not Resolved]
  - Acute kidney injury [Unknown]
  - Chronic kidney disease [Unknown]
  - Chronic kidney disease [Not Recovered/Not Resolved]
  - Economic problem [Unknown]
  - Anhedonia [Unknown]
  - Emotional distress [Unknown]
  - Anxiety [Unknown]
  - Pain [Unknown]

NARRATIVE: CASE EVENT DATE: 20150101
